FAERS Safety Report 23882320 (Version 1)
Quarter: 2024Q2

REPORT INFORMATION
  Report Type: Spontaneous
  Country: CA (occurrence: CA)
  Receive Date: 20240522
  Receipt Date: 20240522
  Transmission Date: 20240716
  Serious: Yes (Life-Threatening, Hospitalization)
  Sender: FDA-Public Use
  Company Number: CA-STRIDES ARCOLAB LIMITED-2024SP005851

PATIENT
  Age: 15 Year
  Sex: Female

DRUGS (1)
  1. COLCHICINE [Suspect]
     Active Substance: COLCHICINE
     Indication: Product used for unknown indication
     Dosage: 0.56 MILLIGRAM/KILOGRAM, THE PATIENT INTENTIONALLY INGESTED COLCHICINE 0.56 MG/KG (DRUG ABUSE).
     Route: 048

REACTIONS (9)
  - Drug abuse [Unknown]
  - Lactic acidosis [Unknown]
  - Multi-organ disorder [Unknown]
  - Coagulopathy [Recovered/Resolved]
  - Pancytopenia [Recovered/Resolved]
  - Hepatic function abnormal [Recovered/Resolved]
  - Vomiting [Unknown]
  - Abdominal pain [Unknown]
  - Toxicity to various agents [Unknown]
